FAERS Safety Report 17442302 (Version 1)
Quarter: 2020Q1

REPORT INFORMATION
  Report Type: Spontaneous
  Country: FR (occurrence: FR)
  Receive Date: 20200220
  Receipt Date: 20200220
  Transmission Date: 20200409
  Serious: Yes (Life-Threatening)
  Sender: FDA-Public Use
  Company Number: FR-NAPPMUNDI-GBR-2020-0075121

PATIENT
  Age: 61 Year
  Sex: Female
  Weight: 48 kg

DRUGS (14)
  1. TEGRETOL [Suspect]
     Active Substance: CARBAMAZEPINE
     Dosage: 400 MG, DAILY (MATIN ET SOIR)
     Route: 048
     Dates: start: 20191216, end: 20191224
  2. TEGRETOL [Suspect]
     Active Substance: CARBAMAZEPINE
     Dosage: 200 MG, DAILY (MATIN ET SOIR)
     Route: 048
     Dates: start: 20191213, end: 20191216
  3. ZOMETA [Suspect]
     Active Substance: ZOLEDRONIC ACID
     Indication: OSTEOPOROSIS
     Dosage: 4 MG, UNK
     Route: 042
     Dates: start: 20191207, end: 20191228
  4. TEGRETOL [Suspect]
     Active Substance: CARBAMAZEPINE
     Dosage: 600 MG, DAILY (MATIN ET SOIR)
     Route: 048
     Dates: start: 20191224, end: 20200107
  5. OXYCODONE HYDROCHLORIDE. [Suspect]
     Active Substance: OXYCODONE HYDROCHLORIDE
     Dosage: 30 MG, Q12H (+ 10 MG DE BOLUS)
     Route: 048
     Dates: start: 20191205, end: 20191209
  6. CARBOPLATINE [Suspect]
     Active Substance: CARBOPLATIN
     Dosage: 480 UNK, UNK
     Route: 042
     Dates: start: 20191128, end: 20191220
  7. OXYCODONE HYDROCHLORIDE. [Suspect]
     Active Substance: OXYCODONE HYDROCHLORIDE
     Dosage: 60 MG, UNK (+ BOLUS 15 MG)
     Route: 048
     Dates: start: 20191209, end: 20191217
  8. TEGRETOL [Suspect]
     Active Substance: CARBAMAZEPINE
     Indication: PAIN MANAGEMENT
     Dosage: 200 MG, DAILY (MATIN ET SOIR)
     Route: 048
     Dates: start: 20200107
  9. OXYCODONE HYDROCHLORIDE. [Suspect]
     Active Substance: OXYCODONE HYDROCHLORIDE
     Indication: PAIN MANAGEMENT
     Dosage: 4.8 MG, Q1H (+ 10 MG DE BOLUS PUIS RELAIS MORPHINE LE 02/01/2020)
     Route: 048
     Dates: start: 20191209, end: 20191217
  10. ALIMTA [Suspect]
     Active Substance: PEMETREXED DISODIUM
     Indication: ADENOCARCINOMA
     Dosage: 650 MG, UNK
     Route: 042
     Dates: start: 20191128, end: 20191220
  11. ALIMTA [Suspect]
     Active Substance: PEMETREXED DISODIUM
     Dosage: 480 MG, UNK
     Route: 042
     Dates: start: 20191128, end: 20191220
  12. CARBOPLATINE [Suspect]
     Active Substance: CARBOPLATIN
     Indication: ADENOCARCINOMA
     Dosage: 480 MG, UNK
     Route: 042
     Dates: start: 20191128, end: 20191220
  13. PARACETAMOL [Suspect]
     Active Substance: ACETAMINOPHEN
     Indication: PAIN MANAGEMENT
     Dosage: 4 G, DAILY
     Route: 048
     Dates: end: 20200107
  14. LOVENOX [Concomitant]
     Active Substance: ENOXAPARIN SODIUM
     Indication: THROMBOSIS PROPHYLAXIS
     Dosage: UNK
     Route: 058
     Dates: start: 20191204

REACTIONS (2)
  - Hepatitis cholestatic [Not Recovered/Not Resolved]
  - Hepatic function abnormal [Not Recovered/Not Resolved]

NARRATIVE: CASE EVENT DATE: 20191223
